FAERS Safety Report 7148441-6 (Version None)
Quarter: 2010Q4

REPORT INFORMATION
  Report Type: 
  Country: None (occurrence: None)
  Receive Date: 20101209
  Receipt Date: 20101203
  Transmission Date: 20110411
  Serious: Yes (Death, Hospitalization, Other)
  Sender: FDA-Public Use
  Company Number: US-CELGENEUS-087-21880-10120472

PATIENT
  Sex: Female
  Weight: 34.5 kg

DRUGS (13)
  1. REVLIMID [Suspect]
     Indication: MULTIPLE MYELOMA
     Route: 048
     Dates: start: 20101002, end: 20101022
  2. REVLIMID [Suspect]
     Route: 048
     Dates: start: 20101030, end: 20101119
  3. REVLIMID [Suspect]
     Route: 048
     Dates: start: 20101127, end: 20101202
  4. DECADRON [Suspect]
     Indication: MULTIPLE MYELOMA
     Route: 041
     Dates: start: 20101002, end: 20101005
  5. DECADRON [Suspect]
     Route: 041
     Dates: start: 20101010, end: 20101013
  6. DECADRON [Suspect]
     Route: 041
     Dates: start: 20101030, end: 20101102
  7. DECADRON [Suspect]
     Route: 041
     Dates: start: 20101030, end: 20101102
  8. OMPERAL [Concomitant]
     Indication: PROPHYLAXIS
     Route: 048
     Dates: start: 20100224, end: 20101202
  9. LOXONIN [Concomitant]
     Indication: MULTIPLE MYELOMA
     Route: 048
     Dates: start: 20100201, end: 20101202
  10. LASIX [Concomitant]
     Indication: MULTIPLE MYELOMA
     Route: 051
     Dates: start: 20100801, end: 20101026
  11. DUROTEP [Concomitant]
     Indication: MULTIPLE MYELOMA
     Route: 003
     Dates: start: 20100201, end: 20101203
  12. ORGARAN [Concomitant]
     Route: 051
     Dates: start: 20101031, end: 20101203
  13. NEOPHYLLIN [Concomitant]
     Route: 041
     Dates: start: 20101114, end: 20101203

REACTIONS (7)
  - CARDIAC FAILURE [None]
  - FEBRILE NEUTROPENIA [None]
  - HYPERTENSION [None]
  - MULTIPLE MYELOMA [None]
  - NEUTROPHIL COUNT DECREASED [None]
  - URINARY TRACT INFECTION [None]
  - WHITE BLOOD CELL COUNT DECREASED [None]
